FAERS Safety Report 5807314-9 (Version None)
Quarter: 2008Q3

REPORT INFORMATION
  Report Type: 
  Country: None (occurrence: None)
  Receive Date: 20080711
  Receipt Date: 20080630
  Transmission Date: 20090109
  Serious: Yes (Hospitalization, Other)
  Sender: FDA-Public Use
  Company Number: US-ROCHE-570086

PATIENT
  Age: 46 Year
  Sex: Male

DRUGS (2)
  1. PEGASYS [Suspect]
     Route: 065
     Dates: end: 20080523
  2. COPEGUS [Suspect]
     Route: 065
     Dates: end: 20080523

REACTIONS (4)
  - DEPRESSION [None]
  - PORPHYRIA NON-ACUTE [None]
  - RASH [None]
  - SUICIDAL IDEATION [None]
